FAERS Safety Report 10053425 (Version 2)
Quarter: 2014Q2

REPORT INFORMATION
  Report Type: Spontaneous
  Country: US (occurrence: US)
  Receive Date: 20140402
  Receipt Date: 20140423
  Transmission Date: 20141212
  Serious: No
  Sender: FDA-Public Use
  Company Number: US-TEVA-472235USA

PATIENT
  Age: 71 Year
  Sex: Female
  Weight: 59.02 kg

DRUGS (16)
  1. PROAIR HFA [Suspect]
     Indication: ASTHMA
     Dates: start: 2004
  2. PROAIR HFA [Suspect]
  3. ALTACE [Concomitant]
  4. METOPROLOL [Concomitant]
  5. PLAVIX [Concomitant]
  6. POTASSIUM CHLORIDE [Concomitant]
  7. VITAMIN D [Concomitant]
  8. MULTIVITAMIN [Concomitant]
  9. LIPITOR [Concomitant]
  10. ASPIRIN [Concomitant]
  11. FOLIC ACID [Concomitant]
  12. GLUCOSAMINE [Concomitant]
  13. VITAMIN B12 [Concomitant]
  14. VITAMIN B6 [Concomitant]
  15. MSN [Concomitant]
  16. SUPPLEMENT FOR GLUTEN FREE DIET [Concomitant]

REACTIONS (4)
  - Abdominal pain upper [Unknown]
  - Insomnia [Unknown]
  - Chest discomfort [Unknown]
  - Drug ineffective [Unknown]
